FAERS Safety Report 19654291 (Version 1)
Quarter: 2021Q3

REPORT INFORMATION
  Report Type: Spontaneous
  Country: US (occurrence: US)
  Receive Date: 20210804
  Receipt Date: 20210804
  Transmission Date: 20211014
  Serious: No
  Sender: FDA-Public Use
  Company Number: US-STRIDES ARCOLAB LIMITED-2021SP005737

PATIENT
  Age: 48 Year
  Sex: Female

DRUGS (9)
  1. CODEINE [Suspect]
     Active Substance: CODEINE
     Indication: MUSCLE SPASTICITY
     Dosage: 30 MILLIGRAM
     Route: 065
     Dates: start: 2020
  2. ASPIRINE [Concomitant]
     Active Substance: ASPIRIN
     Dosage: UNK, INCREASED
     Route: 065
  3. ASPIRINE [Concomitant]
     Active Substance: ASPIRIN
     Indication: PRODUCT USED FOR UNKNOWN INDICATION
     Dosage: UNK
     Route: 065
  4. GABAPENTIN. [Suspect]
     Active Substance: GABAPENTIN
     Indication: MUSCLE SPASTICITY
     Dosage: UNK
     Route: 065
     Dates: start: 2020
  5. CODEINE [Suspect]
     Active Substance: CODEINE
     Indication: PAIN
  6. GABAPENTIN. [Suspect]
     Active Substance: GABAPENTIN
     Indication: PAIN
  7. PARACETAMOL [Suspect]
     Active Substance: ACETAMINOPHEN
     Indication: PAIN
  8. ASPIRINE [Concomitant]
     Active Substance: ASPIRIN
     Dosage: UNK, HIGH DOSE
     Route: 065
  9. PARACETAMOL [Suspect]
     Active Substance: ACETAMINOPHEN
     Indication: MUSCLE SPASTICITY
     Dosage: 300 MILLIGRAM
     Route: 065
     Dates: start: 2020

REACTIONS (1)
  - Drug ineffective for unapproved indication [Unknown]

NARRATIVE: CASE EVENT DATE: 2020
